FAERS Safety Report 8503398-8 (Version None)
Quarter: 2012Q3

REPORT INFORMATION
  Report Type: 
  Country: None (occurrence: None)
  Receive Date: 20120711
  Receipt Date: 20120629
  Transmission Date: 20120928
  Serious: No
  Sender: FDA-Public Use
  Company Number: US-ASTRAZENECA-2012SE27197

PATIENT
  Age: 62 Year
  Sex: Female
  Weight: 90.7 kg

DRUGS (5)
  1. SEROQUEL XR [Suspect]
     Dosage: GENERIC
     Route: 048
  2. RISPERIDONE [Concomitant]
     Dates: start: 20120317
  3. SEROQUEL XR [Suspect]
     Indication: BIPOLAR DISORDER
     Route: 048
     Dates: start: 20110601, end: 20120317
  4. FLUOXETINE HYDROCHLORIDE [Concomitant]
  5. SEROQUEL XR [Suspect]
     Route: 048
     Dates: start: 20120417

REACTIONS (7)
  - DEPRESSION [None]
  - MUSCULAR WEAKNESS [None]
  - HUNGER [None]
  - ABASIA [None]
  - INTENTIONAL DRUG MISUSE [None]
  - TOOTH ABSCESS [None]
  - FEAR [None]
